FAERS Safety Report 25114201 (Version 1)
Quarter: 2025Q1

REPORT INFORMATION
  Report Type: Report from Study
  Country: US (occurrence: US)
  Receive Date: 20250324
  Receipt Date: 20250324
  Transmission Date: 20250409
  Serious: Yes (Other)
  Sender: ABBVIE
  Company Number: US-ABBVIE-6192144

PATIENT
  Age: 78 Year
  Sex: Male

DRUGS (1)
  1. CREON [Suspect]
     Active Substance: PANCRELIPASE AMYLASE\PANCRELIPASE LIPASE\PANCRELIPASE PROTEASE
     Indication: Product used for unknown indication
     Route: 048
     Dates: start: 20241220

REACTIONS (6)
  - Loss of consciousness [Unknown]
  - Chemotherapy [Unknown]
  - Dizziness [Unknown]
  - Fall [Recovering/Resolving]
  - Rib fracture [Unknown]
  - Contusion [Unknown]

NARRATIVE: CASE EVENT DATE: 20250306
